FAERS Safety Report 15688037 (Version 2)
Quarter: 2018Q4

REPORT INFORMATION
  Report Type: Spontaneous
  Country: GB (occurrence: GB)
  Receive Date: 20181205
  Receipt Date: 20181224
  Transmission Date: 20190205
  Serious: Yes (Disabling, Other)
  Sender: FDA-Public Use
  Company Number: GB-009507513-1811GBR012280

PATIENT
  Age: 80 Year
  Sex: Male
  Weight: 57 kg

DRUGS (5)
  1. OMEPRAZOLE. [Concomitant]
     Active Substance: OMEPRAZOLE
     Dosage: TO PROTECT STOMACH
     Route: 065
     Dates: start: 20180425
  2. LOSARTAN POTASSIUM. [Suspect]
     Active Substance: LOSARTAN POTASSIUM
     Dosage: 25 MG, QD
     Route: 065
     Dates: start: 20180425, end: 20181022
  3. ATORVASTATIN [Concomitant]
     Active Substance: ATORVASTATIN
     Dosage: 1 DF
     Route: 065
     Dates: start: 20180425
  4. CLOPIDOGREL [Concomitant]
     Active Substance: CLOPIDOGREL BISULFATE
     Dosage: 1 DF
     Route: 065
     Dates: start: 20180425
  5. LERCANIDIPINE HYDROCHLORIDE [Concomitant]
     Active Substance: LERCANIDIPINE HYDROCHLORIDE
     Dosage: 1 DF, UNK
     Route: 065
     Dates: start: 20180425

REACTIONS (2)
  - Fall [Unknown]
  - Hyponatraemia [Recovered/Resolved]
